FAERS Safety Report 13829921 (Version 6)
Quarter: 2018Q4

REPORT INFORMATION
  Report Type: Spontaneous
  Country: JP (occurrence: JP)
  Receive Date: 20170803
  Receipt Date: 20181123
  Transmission Date: 20190204
  Serious: Yes (Hospitalization, Other)
  Sender: FDA-Public Use
  Company Number: PHJP2017JP024714

PATIENT
  Age: 45 Year
  Sex: Female
  Weight: 49 kg

DRUGS (8)
  1. RIVOTRIL [Concomitant]
     Active Substance: CLONAZEPAM
     Indication: SECONDARY PROGRESSIVE MULTIPLE SCLEROSIS
     Dosage: 0.5 MG, BID
     Route: 048
     Dates: start: 20091110
  2. GABALON [Concomitant]
     Active Substance: BACLOFEN
     Indication: SECONDARY PROGRESSIVE MULTIPLE SCLEROSIS
     Dosage: 10 MG, TID
     Route: 048
     Dates: start: 20071016
  3. REBAMIPIDE [Concomitant]
     Active Substance: REBAMIPIDE
     Indication: SECONDARY PROGRESSIVE MULTIPLE SCLEROSIS
  4. GILENYA [Suspect]
     Active Substance: FINGOLIMOD HYDROCHLORIDE
     Indication: SECONDARY PROGRESSIVE MULTIPLE SCLEROSIS
     Dosage: 0.5 MG, QD
     Route: 048
     Dates: start: 20120208, end: 20170220
  5. ETIZOLAM [Concomitant]
     Active Substance: ETIZOLAM
     Indication: SECONDARY PROGRESSIVE MULTIPLE SCLEROSIS
     Dosage: 0.5 MG, TID
     Route: 048
     Dates: start: 20100309
  6. FERROMIA [Concomitant]
     Active Substance: SODIUM FERROUS CITRATE
     Indication: IRON DEFICIENCY ANAEMIA
     Dosage: 50 MG, QD
     Route: 048
     Dates: start: 20131015
  7. BETANIS [Concomitant]
     Active Substance: MIRABEGRON
     Indication: SECONDARY PROGRESSIVE MULTIPLE SCLEROSIS
     Dosage: 50 MG, QD
     Route: 048
     Dates: start: 20170912
  8. REBAMIPIDE [Concomitant]
     Active Substance: REBAMIPIDE
     Indication: PROPHYLAXIS
     Dosage: 100 MG, TID
     Route: 048
     Dates: start: 20130528

REACTIONS (12)
  - Gait disturbance [Unknown]
  - Product use in unapproved indication [Unknown]
  - Muscular weakness [Recovering/Resolving]
  - Dysstasia [Unknown]
  - Lymphopenia [Recovered/Resolved]
  - Multiple sclerosis relapse [Recovered/Resolved]
  - Paralysis [Unknown]
  - Ataxia [Recovering/Resolving]
  - Malaise [Unknown]
  - Fatigue [Recovering/Resolving]
  - Rebound effect [Recovered/Resolved]
  - Central nervous system lesion [Not Recovered/Not Resolved]

NARRATIVE: CASE EVENT DATE: 201704
